FAERS Safety Report 18775881 (Version 5)
Quarter: 2023Q1

REPORT INFORMATION
  Report Type: Report from Study
  Country: CA (occurrence: CA)
  Receive Date: 20210122
  Receipt Date: 20230105
  Transmission Date: 20230417
  Serious: Yes (Other)
  Sender: FDA-Public Use
  Company Number: CA-TAKEDA-2021TUS003799

PATIENT
  Age: 71 Year
  Sex: Female

DRUGS (6)
  1. VEDOLIZUMAB [Suspect]
     Active Substance: VEDOLIZUMAB
     Indication: Colitis ulcerative
     Dosage: 300 MILLIGRAM
     Route: 042
     Dates: start: 20201207
  2. VEDOLIZUMAB [Suspect]
     Active Substance: VEDOLIZUMAB
     Dosage: 300 MILLIGRAM
     Route: 042
  3. VEDOLIZUMAB [Suspect]
     Active Substance: VEDOLIZUMAB
     Dosage: 300 MILLIGRAM
     Route: 042
  4. METFORMIN [Suspect]
     Active Substance: METFORMIN HYDROCHLORIDE
     Indication: Product used for unknown indication
     Dosage: UNK
     Route: 065
  5. MESALAMINE [Concomitant]
     Active Substance: MESALAMINE
     Dosage: 4.8 GRAM
     Dates: start: 201301
  6. Salofalk [Concomitant]
     Dosage: 1 GRAM
     Dates: start: 201301

REACTIONS (7)
  - Haematochezia [Recovered/Resolved]
  - Chest discomfort [Unknown]
  - Blood glucose increased [Unknown]
  - Frequent bowel movements [Unknown]
  - Diarrhoea [Unknown]
  - Poor quality sleep [Unknown]
  - Arthralgia [Unknown]

NARRATIVE: CASE EVENT DATE: 20210106
